FAERS Safety Report 9170315 (Version 1)
Quarter: 2013Q1

REPORT INFORMATION
  Report Type: Spontaneous
  Country: DE (occurrence: DE)
  Receive Date: 20130319
  Receipt Date: 20130319
  Transmission Date: 20140127
  Serious: Yes (Life-Threatening)
  Sender: FDA-Public Use
  Company Number: DE-009507513-1303DEU007742

PATIENT
  Age: 31 Year
  Sex: Male

DRUGS (4)
  1. REMERGIL SOLTAB [Suspect]
     Indication: DEPRESSION
     Dosage: 15 MG, QD
  2. CITALOPRAM [Concomitant]
     Indication: DEPRESSION
     Dosage: 40 MG, QD
  3. MORPHINE [Concomitant]
     Dosage: UNK
  4. FLUNITRAZEPAM [Concomitant]
     Indication: SUICIDE ATTEMPT
     Dosage: UNK
     Route: 048
     Dates: start: 201006

REACTIONS (2)
  - Suicide attempt [Unknown]
  - Therapy responder [Unknown]
